FAERS Safety Report 14663991 (Version 1)
Quarter: 2018Q1

REPORT INFORMATION
  Report Type: Spontaneous
  Country: US (occurrence: US)
  Receive Date: 20180318
  Receipt Date: 20180318
  Transmission Date: 20180509
  Serious: Yes (Disabling, Other)
  Sender: FDA-Public Use
  Company Number: None

PATIENT
  Age: 59 Year
  Sex: Male
  Weight: 92.25 kg

DRUGS (23)
  1. O/2 [Concomitant]
  2. WARFARIN [Concomitant]
     Active Substance: WARFARIN
  3. NEXIUM [Concomitant]
     Active Substance: ESOMEPRAZOLE MAGNESIUM
  4. DIOVAN [Concomitant]
     Active Substance: VALSARTAN
  5. POTASSIUM [Concomitant]
     Active Substance: POTASSIUM
  6. FLONAISE [Concomitant]
  7. CPAP [Concomitant]
     Active Substance: DEVICE
  8. TRAGENTA [Concomitant]
  9. ACCOLATE [Concomitant]
     Active Substance: ZAFIRLUKAST
  10. ASA [Concomitant]
     Active Substance: ASPIRIN
  11. ICD [Concomitant]
  12. LYRICA [Concomitant]
     Active Substance: PREGABALIN
  13. LASIX [Concomitant]
     Active Substance: FUROSEMIDE
  14. CARVEDILOL PHOSPHATE. [Suspect]
     Active Substance: CARVEDILOL PHOSPHATE
     Indication: CARDIAC FAILURE CONGESTIVE
     Dosage: ?          QUANTITY:90 CAPSULE(S);?
     Route: 048
     Dates: start: 20180311
  15. COREG CR [Concomitant]
     Active Substance: CARVEDILOL PHOSPHATE
  16. PROAIR HFA [Concomitant]
     Active Substance: ALBUTEROL SULFATE
  17. LIPITOR [Concomitant]
     Active Substance: ATORVASTATIN CALCIUM
  18. LIDODERM [Concomitant]
     Active Substance: LIDOCAINE
  19. CARVEDILOL PHOSPHATE. [Suspect]
     Active Substance: CARVEDILOL PHOSPHATE
     Indication: MYOCARDIAL INFARCTION
     Dosage: ?          QUANTITY:90 CAPSULE(S);?
     Route: 048
     Dates: start: 20180311
  20. HYDROMORPHON [Concomitant]
     Active Substance: HYDROMORPHONE
  21. VALIUM [Concomitant]
     Active Substance: DIAZEPAM
  22. VITAMIN D3 [Concomitant]
     Active Substance: CHOLECALCIFEROL
  23. VITAMIN E [Concomitant]
     Active Substance: .ALPHA.-TOCOPHEROL

REACTIONS (6)
  - Abdominal discomfort [None]
  - Blood pressure increased [None]
  - Diarrhoea [None]
  - Product physical issue [None]
  - Cardiac disorder [None]
  - Product substitution issue [None]

NARRATIVE: CASE EVENT DATE: 20180311
